FAERS Safety Report 11803147 (Version 1)
Quarter: 2015Q4

REPORT INFORMATION
  Report Type: Report from Study
  Country: US (occurrence: US)
  Receive Date: 20151204
  Receipt Date: 20151204
  Transmission Date: 20160305
  Serious: Yes (Other)
  Sender: FDA-Public Use
  Company Number: US-BIOGENIDEC-2015BI159078

PATIENT
  Sex: Male

DRUGS (2)
  1. TECFIDERA [Suspect]
     Active Substance: DIMETHYL FUMARATE
     Indication: MULTIPLE SCLEROSIS
     Dates: start: 20130819
  2. TECFIDERA [Suspect]
     Active Substance: DIMETHYL FUMARATE
     Indication: MULTIPLE SCLEROSIS
     Dates: start: 20140731, end: 20150805

REACTIONS (4)
  - Hearing impaired [Not Recovered/Not Resolved]
  - Hot flush [Recovered/Resolved]
  - Diabetes mellitus [Not Recovered/Not Resolved]
  - Drug delivery device implantation [Not Recovered/Not Resolved]
